FAERS Safety Report 17597686 (Version 1)
Quarter: 2020Q1

REPORT INFORMATION
  Report Type: Spontaneous
  Country: RU (occurrence: RU)
  Receive Date: 20200330
  Receipt Date: 20200330
  Transmission Date: 20200409
  Serious: Yes (Other)
  Sender: FDA-Public Use
  Company Number: NVSC2020RU086671

PATIENT
  Age: 33 Year
  Sex: Female
  Weight: 76 kg

DRUGS (2)
  1. KETOPROFEN. [Concomitant]
     Active Substance: KETOPROFEN
     Indication: ANALGESIC THERAPY
     Dosage: UNK
     Route: 030
     Dates: start: 20200220, end: 20200221
  2. AMOKSIKLAV [Suspect]
     Active Substance: AMOXICILLIN\CLAVULANATE POTASSIUM
     Indication: ANTIBIOTIC PROPHYLAXIS
     Dosage: 1.2 G, BID
     Route: 042
     Dates: start: 20200220, end: 20200221

REACTIONS (1)
  - Urticaria [Recovered/Resolved]

NARRATIVE: CASE EVENT DATE: 20200221
